FAERS Safety Report 21762839 (Version 1)
Quarter: 2022Q4

REPORT INFORMATION
  Report Type: Spontaneous
  Country: IT (occurrence: IT)
  Receive Date: 20221221
  Receipt Date: 20221221
  Transmission Date: 20230112
  Serious: Yes (Other)
  Sender: FDA-Public Use
  Company Number: IT-MINISAL02-892963

PATIENT
  Age: 41 Year
  Sex: Female

DRUGS (1)
  1. LIBTAYO [Suspect]
     Active Substance: CEMIPLIMAB-RWLC
     Indication: Lung neoplasm
     Dosage: UTILIZZATO 350MG S DI CEMIPLIMAB IN 100ML DI FISIOLOGICA UTILIZZATO LIBTAYO 350MG AIC 048070015 LOTT
     Route: 042
     Dates: start: 20220929, end: 20220929

REACTIONS (3)
  - Chest discomfort [Recovered/Resolved]
  - Erythema [Recovered/Resolved]
  - Dyspnoea [Recovered/Resolved]

NARRATIVE: CASE EVENT DATE: 20220929
